FAERS Safety Report 24757684 (Version 1)
Quarter: 2024Q4

REPORT INFORMATION
  Report Type: Spontaneous
  Country: ES (occurrence: ES)
  Receive Date: 20241220
  Receipt Date: 20241220
  Transmission Date: 20250114
  Serious: Yes (Other)
  Sender: AUROBINDO
  Company Number: ES-LABALTER-202405705

PATIENT
  Age: 9 Year
  Sex: Male

DRUGS (1)
  1. RISPERIDONE [Suspect]
     Active Substance: RISPERIDONE
     Indication: Attention deficit hyperactivity disorder
     Dosage: DOSAGE UNKNOWN. HIGH DOSES FOR THE PAST 3 WEEKS
     Route: 065

REACTIONS (4)
  - Altered state of consciousness [Recovered/Resolved]
  - Extrapyramidal disorder [Recovered/Resolved]
  - Speech disorder [Recovered/Resolved]
  - Off label use [Unknown]
